FAERS Safety Report 21967832 (Version 2)
Quarter: 2023Q1

REPORT INFORMATION
  Report Type: Report from Study
  Country: BE (occurrence: None)
  Receive Date: 20230208
  Receipt Date: 20230210
  Transmission Date: 20230417
  Serious: Yes (Death, Life-Threatening)
  Sender: FDA-Public Use
  Company Number: BE-Merck Healthcare KGaA-9382340

PATIENT
  Age: 82 Year
  Sex: Male
  Weight: 68 kg

DRUGS (1)
  1. TEPOTINIB [Suspect]
     Active Substance: TEPOTINIB
     Indication: Non-small cell lung cancer
     Route: 048
     Dates: start: 20220430, end: 20220512

REACTIONS (2)
  - Hepatotoxicity [Fatal]
  - Nephropathy toxic [Fatal]

NARRATIVE: CASE EVENT DATE: 20220513
